FAERS Safety Report 6433078-4 (Version None)
Quarter: 2009Q4

REPORT INFORMATION
  Report Type: 
  Country: None (occurrence: None)
  Receive Date: 20091109
  Receipt Date: 20091022
  Transmission Date: 20100525
  Serious: No
  Sender: FDA-Public Use
  Company Number: PL-ROCHE-665214

PATIENT
  Sex: Male
  Weight: 4 kg

DRUGS (2)
  1. ROACCUTANE [Suspect]
     Indication: ACNE
     Dosage: TAKEN FOR -3 MONTHS.  THERAPY DISCONTINUED FOR 1.5 YEARS.
     Dates: start: 20020101
  2. ROACCUTANE [Suspect]
     Dates: end: 20050101

REACTIONS (2)
  - NO ADVERSE EVENT [None]
  - NORMAL NEWBORN [None]
